FAERS Safety Report 4428490-9 (Version None)
Quarter: 2004Q3

REPORT INFORMATION
  Report Type: 
  Country: None (occurrence: None)
  Receive Date: 20040816
  Receipt Date: 20040804
  Transmission Date: 20050211
  Serious: Yes (Death)
  Sender: FDA-Public Use
  Company Number: USA-2004-0015681

PATIENT
  Age: 45 Year
  Sex: Male
  Weight: 113.4 kg

DRUGS (3)
  1. OXYCONTIN [Suspect]
  2. MORPHINE SULFATE [Suspect]
     Dosage: UNK MG,
  3. DIAZEPAM [Suspect]
     Dosage: UNK MG,

REACTIONS (12)
  - ACCIDENT [None]
  - ANXIETY [None]
  - COUGH [None]
  - DRUG TOXICITY [None]
  - DYSPNOEA [None]
  - HYPERSOMNIA [None]
  - PHANTOM PAIN [None]
  - PLEURAL ADHESION [None]
  - PLEURAL FIBROSIS [None]
  - PULMONARY BULLA [None]
  - PULMONARY CONGESTION [None]
  - PULMONARY OEDEMA [None]
